FAERS Safety Report 5002657-3 (Version None)
Quarter: 2006Q2

REPORT INFORMATION
  Report Type: 
  Country: None (occurrence: None)
  Receive Date: 20060510
  Receipt Date: 20060426
  Transmission Date: 20061013
  Serious: Yes (Hospitalization, Disabling)
  Sender: FDA-Public Use
  Company Number: PHHO2005JP04128

PATIENT
  Age: 83 Year
  Sex: Male
  Weight: 149.9 kg

DRUGS (3)
  1. VISUDYNE [Suspect]
     Indication: MACULAR DEGENERATION
     Dosage: 5.2 ML DAILY IV
     Route: 042
     Dates: start: 20041028, end: 20041029
  2. SULAR [Concomitant]
  3. CALNATE [Concomitant]

REACTIONS (2)
  - RETINAL DETACHMENT [None]
  - RETINAL HAEMORRHAGE [None]
